FAERS Safety Report 9758298 (Version 4)
Quarter: 2014Q1

REPORT INFORMATION
  Report Type: Spontaneous
  Country: IT (occurrence: IT)
  Receive Date: 20131216
  Receipt Date: 20140213
  Transmission Date: 20141002
  Serious: Yes (Hospitalization)
  Sender: FDA-Public Use
  Company Number: IT-RANBAXY-2013RR-76125

PATIENT
  Age: 41 Year
  Sex: Female

DRUGS (2)
  1. AMOXICILLIN/CLAVULANIC ACID [Suspect]
     Indication: INJURY
     Dosage: 1 DOSAGE UNIT COMPLETE
     Route: 048
     Dates: start: 20131023, end: 20131023
  2. PARACETAMOL [Suspect]
     Indication: PAIN
     Dosage: 1 GRAM COMPLETE
     Route: 048
     Dates: start: 20131023, end: 20131023

REACTIONS (3)
  - Dyspnoea [Recovered/Resolved]
  - Eyelid oedema [Recovered/Resolved]
  - Urticaria [Recovered/Resolved]
